FAERS Safety Report 7861003-8 (Version None)
Quarter: 2011Q4

REPORT INFORMATION
  Report Type: 
  Country: None (occurrence: None)
  Receive Date: 20111027
  Receipt Date: 20111014
  Transmission Date: 20120403
  Serious: Yes (Hospitalization)
  Sender: FDA-Public Use
  Company Number: US-GLAXOSMITHKLINE-A0950524A

PATIENT
  Sex: Male

DRUGS (2)
  1. AVANDAMET [Suspect]
     Indication: DIABETES MELLITUS
     Route: 048
  2. AVANDIA [Suspect]
     Indication: DIABETES MELLITUS
     Route: 048

REACTIONS (11)
  - HYPERTENSION [None]
  - HYPERLIPIDAEMIA [None]
  - POLYDIPSIA [None]
  - OEDEMA [None]
  - ARTERIOSCLEROSIS [None]
  - DYSPNOEA [None]
  - POLYURIA [None]
  - CHEST PAIN [None]
  - CARDIAC HYPERTROPHY [None]
  - HYPERPHAGIA [None]
  - ARRHYTHMIA [None]
